FAERS Safety Report 11699959 (Version 1)
Quarter: 2015Q4

REPORT INFORMATION
  Report Type: Spontaneous
  Country: US (occurrence: None)
  Receive Date: 20151103
  Receipt Date: 20151103
  Transmission Date: 20160304
  Serious: Yes (Hospitalization, Disabling)
  Sender: FDA-Public Use
  Company Number: 54973 AE # 1653

PATIENT
  Age: 62 Year
  Sex: Female

DRUGS (1)
  1. COLD N COUGH 4 KIDS [Suspect]
     Active Substance: HOMEOPATHICS
     Indication: NASOPHARYNGITIS
     Dosage: 1 DOSE

REACTIONS (7)
  - Aphonia [None]
  - Cough [None]
  - Cardiac disorder [None]
  - Wheezing [None]
  - Hypertension [None]
  - Drug hypersensitivity [None]
  - Impaired work ability [None]

NARRATIVE: CASE EVENT DATE: 201503
